FAERS Safety Report 4503531-9 (Version None)
Quarter: 2004Q4

REPORT INFORMATION
  Report Type: 
  Country: None (occurrence: None)
  Receive Date: 20041117
  Receipt Date: 20041105
  Transmission Date: 20050328
  Serious: Yes (Other)
  Sender: FDA-Public Use
  Company Number: PHEH2004US11998

PATIENT
  Age: 62 Year
  Sex: Male

DRUGS (4)
  1. GLEEVEC [Suspect]
     Indication: CHRONIC MYELOID LEUKAEMIA
     Dosage: 400 MG, QD
     Route: 048
     Dates: start: 20031015
  2. ATENOLOL [Concomitant]
     Indication: HYPERTENSION
     Dosage: 50 MG, QD
     Route: 048
  3. NEXIUM [Concomitant]
     Indication: GASTROOESOPHAGEAL REFLUX DISEASE
     Dosage: 40 MG, QD, PRN
     Route: 048
     Dates: start: 20031201
  4. NEUTRA-PHOS [Concomitant]
     Indication: HYPOPHOSPHATAEMIA
     Dosage: 1 PACKET, QD
     Route: 048
     Dates: start: 20031124

REACTIONS (3)
  - INTERSTITIAL LUNG DISEASE [None]
  - PNEUMONITIS [None]
  - PULMONARY FIBROSIS [None]
